FAERS Safety Report 7440737-3 (Version None)
Quarter: 2011Q2

REPORT INFORMATION
  Report Type: 
  Country: None (occurrence: None)
  Receive Date: 20110427
  Receipt Date: 20110418
  Transmission Date: 20111010
  Serious: Yes (Hospitalization)
  Sender: FDA-Public Use
  Company Number: DE-CEPHALON-2011001842

PATIENT
  Sex: Female
  Weight: 68 kg

DRUGS (2)
  1. MODAFINIL [Suspect]
     Indication: HYPERSOMNIA
     Route: 048
     Dates: start: 20090101
  2. AMITRIPTYLINE [Concomitant]
     Indication: PAIN
     Dates: start: 20110301

REACTIONS (3)
  - SPEECH DISORDER [None]
  - FATIGUE [None]
  - MYALGIA [None]
